FAERS Safety Report 5977146-X (Version None)
Quarter: 2008Q4

REPORT INFORMATION
  Report Type: 
  Country: None (occurrence: None)
  Receive Date: 20081203
  Receipt Date: 20081124
  Transmission Date: 20090506
  Serious: Yes (Other)
  Sender: FDA-Public Use
  Company Number: US-JNJFOC-20081105763

PATIENT
  Sex: Female
  Weight: 83.46 kg

DRUGS (4)
  1. REMICADE [Suspect]
     Indication: COLITIS ULCERATIVE
     Route: 042
  2. LIALDA [Concomitant]
  3. LEXAPRO [Concomitant]
  4. ORAL CONTRACEPTIVE [Concomitant]

REACTIONS (2)
  - AMNESIA [None]
  - PARAESTHESIA [None]
